FAERS Safety Report 23650313 (Version 1)
Quarter: 2024Q1

REPORT INFORMATION
  Report Type: Spontaneous
  Country: US (occurrence: None)
  Receive Date: 20240320
  Receipt Date: 20240320
  Transmission Date: 20240409
  Serious: No
  Sender: FDA-Public Use
  Company Number: US-ROCHE-3493705

PATIENT
  Sex: Female
  Weight: 113.5 kg

DRUGS (14)
  1. VABYSMO [Suspect]
     Active Substance: FARICIMAB\FARICIMAB-SVOA
     Indication: Neovascular age-related macular degeneration
     Route: 050
     Dates: start: 20231004
  2. KETAMINE [Concomitant]
     Active Substance: KETAMINE
     Indication: Anxiety
     Dosage: HOLDS UNDER THE TONGUE/IN MOUTH FOR ~ ONE HOUR
     Route: 060
     Dates: start: 2022
  3. GENOTROPIN [Concomitant]
     Active Substance: SOMATROPIN
     Indication: Growth hormone deficiency
     Dosage: TAKES DOSE AT BEDTIME
     Route: 058
     Dates: start: 1990
  4. SYNTHROID [Concomitant]
     Active Substance: LEVOTHYROXINE SODIUM
     Route: 048
  5. CYTOMEL [Concomitant]
     Active Substance: LIOTHYRONINE SODIUM
     Route: 048
  6. MICARDIS [Concomitant]
     Active Substance: TELMISARTAN
     Indication: Hypertension
     Route: 048
  7. NUCYNTA [Concomitant]
     Active Substance: TAPENTADOL HYDROCHLORIDE
     Indication: Pain
     Dosage: TAKES ONE-HALF (37.5 MG) PER DOSE
     Route: 048
  8. NUCYNTA [Concomitant]
     Active Substance: TAPENTADOL HYDROCHLORIDE
     Indication: Osteoarthritis
  9. NUCYNTA [Concomitant]
     Active Substance: TAPENTADOL HYDROCHLORIDE
     Indication: Rheumatoid arthritis
  10. SINGULAIR [Concomitant]
     Active Substance: MONTELUKAST SODIUM
     Indication: Asthma
     Route: 048
  11. TIZANIDINE [Concomitant]
     Active Substance: TIZANIDINE
     Indication: Muscle spasms
     Dosage: TAKES ONE-HALF TABLET PER DOSE OR 1 TABLET IF BAD
     Route: 048
  12. XOPENEX [Concomitant]
     Active Substance: LEVALBUTEROL HYDROCHLORIDE
     Indication: Asthma
     Dosage: USES AS NEEDED VIA NEBULIZER ABOUT A HOUR APART FROM CROMOLYN SODIUM WHEN NEEDED
     Route: 055
  13. CROMOLYN SODIUM [Concomitant]
     Active Substance: CROMOLYN SODIUM
     Indication: Asthma
     Dosage: USES AS NEEDED ABOUT A HOUR APART FROM XOPENEX WHEN NEEDED
     Route: 055
  14. SPIRONOLACTONE [Concomitant]
     Active Substance: SPIRONOLACTONE
     Route: 048

REACTIONS (6)
  - Dissociation [Not Recovered/Not Resolved]
  - Memory impairment [Not Recovered/Not Resolved]
  - Insulin-like growth factor increased [Recovered/Resolved]
  - Productive cough [Recovered/Resolved]
  - Heart rate decreased [Recovered/Resolved]
  - Off label use [Unknown]

NARRATIVE: CASE EVENT DATE: 20231004
